FAERS Safety Report 25940907 (Version 1)
Quarter: 2025Q4

REPORT INFORMATION
  Report Type: Spontaneous
  Country: US (occurrence: None)
  Receive Date: 20251019
  Receipt Date: 20251019
  Transmission Date: 20260117
  Serious: Yes (Hospitalization)
  Sender: FDA-CTU
  Company Number: None

PATIENT
  Age: 57 Year
  Sex: Female

DRUGS (12)
  1. TALTZ [Suspect]
     Active Substance: IXEKIZUMAB
     Indication: Psoriasis
     Dosage: FREQUENCY : MONTHLY;?
     Route: 058
     Dates: start: 20240301
  2. VALACYCLOVIR [Concomitant]
     Active Substance: VALACYCLOVIR HYDROCHLORIDE
  3. flonase nasal spray 50mcg [Concomitant]
  4. acetaminophen 325mg [Concomitant]
  5. amitryptiline 10mg [Concomitant]
  6. BACLOFEN [Concomitant]
     Active Substance: BACLOFEN
  7. CARBAMAZEPINE [Concomitant]
     Active Substance: CARBAMAZEPINE
  8. IBUPROFEN [Concomitant]
     Active Substance: IBUPROFEN
  9. LINZESS [Concomitant]
     Active Substance: LINACLOTIDE
  10. CLONAZEPAM [Concomitant]
     Active Substance: CLONAZEPAM
  11. OMEPRAZOLE [Concomitant]
     Active Substance: OMEPRAZOLE
  12. TRAMADOL [Concomitant]
     Active Substance: TRAMADOL

REACTIONS (7)
  - Fall [None]
  - Respiratory arrest [None]
  - Skin discolouration [None]
  - Anxiety [None]
  - Hypoaesthesia [None]
  - Body temperature fluctuation [None]
  - Malaise [None]

NARRATIVE: CASE EVENT DATE: 20251014
